FAERS Safety Report 7620275-5 (Version None)
Quarter: 2011Q3

REPORT INFORMATION
  Report Type: 
  Country: None (occurrence: None)
  Receive Date: 20110719
  Receipt Date: 20110708
  Transmission Date: 20111222
  Serious: Yes (Other)
  Sender: FDA-Public Use
  Company Number: PHHY2011JP55847

PATIENT

DRUGS (2)
  1. TEGRETOL [Suspect]
     Indication: NEURALGIA
     Route: 048
  2. RABEPRAZOLE SODIUM [Suspect]

REACTIONS (2)
  - INTERSTITIAL LUNG DISEASE [None]
  - HYPOGLOBULINAEMIA [None]
